FAERS Safety Report 20622798 (Version 3)
Quarter: 2022Q2

REPORT INFORMATION
  Report Type: Spontaneous
  Country: JP (occurrence: JP)
  Receive Date: 20220322
  Receipt Date: 20220422
  Transmission Date: 20220721
  Serious: Yes (Other)
  Sender: FDA-Public Use
  Company Number: JP-NOVARTISPH-NVSJ2022JP004834

PATIENT
  Age: 48 Year
  Sex: Male

DRUGS (13)
  1. CARBOPLATIN [Suspect]
     Active Substance: CARBOPLATIN
     Indication: Meningioma malignant
     Dosage: UNK, AREA UNDER THE CURVE [AUC] 5 ON DAY 1
     Route: 041
  2. CARBOPLATIN [Suspect]
     Active Substance: CARBOPLATIN
     Indication: Metastases to bone
  3. CARBOPLATIN [Suspect]
     Active Substance: CARBOPLATIN
     Indication: Metastases to lymph nodes
  4. PACLITAXEL [Suspect]
     Active Substance: PACLITAXEL
     Indication: Meningioma malignant
     Dosage: 175 MG/M2 ON DAY 1 EVERY 3 WEEKS
     Route: 065
  5. PACLITAXEL [Suspect]
     Active Substance: PACLITAXEL
     Indication: Metastases to bone
  6. PACLITAXEL [Suspect]
     Active Substance: PACLITAXEL
     Indication: Metastases to lymph nodes
  7. DENOSUMAB [Suspect]
     Active Substance: DENOSUMAB
     Indication: Meningioma malignant
     Dosage: UNK, QMO
     Route: 058
  8. DENOSUMAB [Suspect]
     Active Substance: DENOSUMAB
     Indication: Metastases to bone
  9. DENOSUMAB [Suspect]
     Active Substance: DENOSUMAB
     Indication: Metastases to lymph nodes
  10. IRBESARTAN [Concomitant]
     Active Substance: IRBESARTAN
     Indication: Hypertension
     Dosage: 100 MG
     Route: 065
  11. BISOPROLOL [Concomitant]
     Active Substance: BISOPROLOL
     Indication: Hypertension
     Dosage: 2.5 MG
     Route: 065
  12. AMLODIPINE [Concomitant]
     Active Substance: AMLODIPINE BESYLATE
     Indication: Hypertension
     Dosage: 5 MG
     Route: 065
  13. TOFOGLIFLOZIN [Concomitant]
     Active Substance: TOFOGLIFLOZIN
     Indication: Diabetes mellitus
     Dosage: 20 MG
     Route: 065

REACTIONS (3)
  - Anaphylactic shock [Unknown]
  - Thrombocytopenia [Unknown]
  - Product use in unapproved indication [Unknown]
